FAERS Safety Report 5626754-4 (Version None)
Quarter: 2008Q1

REPORT INFORMATION
  Report Type: 
  Country: None (occurrence: None)
  Receive Date: 20080214
  Receipt Date: 20080205
  Transmission Date: 20080703
  Serious: Yes (Hospitalization)
  Sender: FDA-Public Use
  Company Number: DE-PFIZER INC-2008011464

PATIENT
  Sex: Female

DRUGS (15)
  1. NORVASC [Suspect]
     Indication: HYPERTENSION
     Route: 048
     Dates: start: 20030611, end: 20030616
  2. NORVASC [Suspect]
     Dates: start: 20030619, end: 20030705
  3. SODIUM CHLORIDE INJ [Suspect]
     Indication: THYROID DISORDER
     Route: 042
     Dates: start: 20030608, end: 20030703
  4. SODIUM CHLORIDE INJ [Suspect]
     Route: 048
     Dates: start: 20030607, end: 20030705
  5. EUTHYROX [Suspect]
     Indication: THYROID DISORDER
     Dates: start: 20030607, end: 20030705
  6. CLEXANE [Suspect]
     Indication: PROPHYLAXIS
     Route: 058
     Dates: start: 20030610, end: 20030623
  7. PHENYTOIN [Suspect]
     Indication: PROPHYLAXIS
     Route: 048
     Dates: start: 20030611, end: 20030705
  8. LOPIRIN [Suspect]
     Indication: HYPERTENSION
     Dates: start: 20030618, end: 20030627
  9. MIRTAZAPINE [Suspect]
     Indication: DEPRESSION
     Dates: start: 20030619, end: 20030624
  10. THROMBOPHOB SALBE [Suspect]
     Indication: PROPHYLAXIS
     Route: 058
     Dates: start: 20030624, end: 20030705
  11. PARACETAMOL [Suspect]
     Indication: PAIN
     Route: 048
     Dates: start: 20030624, end: 20030629
  12. MOVICOL [Suspect]
     Indication: CONSTIPATION
     Dates: start: 20030625, end: 20030705
  13. XIMOVAN ^RHONE-POULENC^ [Suspect]
     Indication: SLEEP DISORDER
     Dates: start: 20030626, end: 20030626
  14. COVERSUM [Suspect]
     Indication: HYPERTENSION
     Dates: start: 20030628, end: 20030705
  15. VIOXX [Suspect]
     Indication: PAIN
     Dates: start: 20030702, end: 20030704

REACTIONS (1)
  - STEVENS-JOHNSON SYNDROME [None]
